FAERS Safety Report 19834958 (Version 1)
Quarter: 2021Q3

REPORT INFORMATION
  Report Type: Spontaneous
  Country: US (occurrence: US)
  Receive Date: 20210915
  Receipt Date: 20210915
  Transmission Date: 20211014
  Serious: No
  Sender: FDA-Public Use
  Company Number: US-PFIZER INC-202101103275

PATIENT
  Age: 19 Year
  Sex: Female

DRUGS (2)
  1. RABIES VACCINE [Suspect]
     Active Substance: RABIES VACCINE
     Dosage: UNK
  2. ERYTHROMYCIN. [Suspect]
     Active Substance: ERYTHROMYCIN
     Dosage: UNK

REACTIONS (1)
  - Hypersensitivity [Unknown]
